FAERS Safety Report 11647426 (Version 1)
Quarter: 2015Q4

REPORT INFORMATION
  Report Type: Spontaneous
  Country: IT (occurrence: IT)
  Receive Date: 20151021
  Receipt Date: 20151021
  Transmission Date: 20160304
  Serious: Yes (Other)
  Sender: FDA-Public Use
  Company Number: IT-TEVA-601719ACC

PATIENT
  Age: 71 Year
  Sex: Female
  Weight: 60 kg

DRUGS (4)
  1. RANIDIL - 50 MG/5 ML SOLUZIONE INIETTABILE [Concomitant]
     Active Substance: RANITIDINE\RANITIDINE HYDROCHLORIDE
     Indication: PREMEDICATION
     Dosage: 50 MG; FORM STRENGTH: 50 MG/5 ML
     Route: 042
     Dates: start: 20150703, end: 20150818
  2. SOLDESAM - 8 MG/2 ML SOLUZIONE INIETTABILE [Concomitant]
     Active Substance: DEXAMETHASONE SODIUM PHOSPHATE
     Indication: PREMEDICATION
     Dosage: 8 MG; FORM STRENGTH: 8 MG/2 ML
     Route: 042
     Dates: start: 20150703, end: 20150818
  3. CARBOPLATINO TEVA -  45 ML 10 MG/ML - TEVA PHARMA B.V. [Suspect]
     Active Substance: CARBOPLATIN
     Indication: CERVIX CARCINOMA
     Dosage: 390 MG CYCLICAL; FORM STRENGTH: 45 ML 10 MG/ML
     Route: 042
     Dates: start: 20150703, end: 20150818
  4. ALOXI - 250 MCG SOLUZIONE INIETTABILE [Concomitant]
     Indication: PREMEDICATION
     Dosage: 250 MG
     Route: 042
     Dates: start: 20150703, end: 20150818

REACTIONS (4)
  - Hypotension [Recovered/Resolved]
  - Confusional state [Recovered/Resolved]
  - Malaise [Recovered/Resolved]
  - Tremor [Recovered/Resolved]

NARRATIVE: CASE EVENT DATE: 20150818
